FAERS Safety Report 4556808-5 (Version None)
Quarter: 2005Q1

REPORT INFORMATION
  Report Type: 
  Country: None (occurrence: None)
  Receive Date: 20050120
  Receipt Date: 20041208
  Transmission Date: 20050727
  Serious: Yes (Other)
  Sender: FDA-Public Use
  Company Number: US-GLAXOSMITHKLINE-A0536754A

PATIENT
  Age: 30 Year
  Sex: Male
  Weight: 88.6 kg

DRUGS (1)
  1. SOMINEX [Suspect]
     Indication: SLEEP DISORDER
     Route: 048
     Dates: start: 20041101, end: 20041209

REACTIONS (2)
  - DEPENDENCE [None]
  - ENERGY INCREASED [None]
